FAERS Safety Report 8409187-7 (Version None)
Quarter: 2012Q2

REPORT INFORMATION
  Report Type: 
  Country: None (occurrence: None)
  Receive Date: 20120604
  Receipt Date: 20120525
  Transmission Date: 20120825
  Serious: Yes (Other)
  Sender: FDA-Public Use
  Company Number: US-ABBOTT-12P-163-0940139-00

PATIENT
  Sex: Male
  Weight: 104.42 kg

DRUGS (5)
  1. HUMIRA [Suspect]
     Dates: start: 20120525
  2. DIFFERIN [Concomitant]
     Indication: ACNE
     Dosage: GEL
  3. NAPROSYN [Concomitant]
     Indication: BACK PAIN
     Dosage: PRN, ONCE IN AWHILE
  4. HUMIRA [Suspect]
     Indication: ANKYLOSING SPONDYLITIS
     Dates: start: 20120420, end: 20120504
  5. DUAC [Concomitant]
     Indication: ACNE

REACTIONS (5)
  - INCISION SITE ERYTHEMA [None]
  - MELANOCYTIC NAEVUS [None]
  - PRECANCEROUS SKIN LESION [None]
  - INCISION SITE COMPLICATION [None]
  - INCISION SITE OEDEMA [None]
